FAERS Safety Report 7466015-4 (Version None)
Quarter: 2011Q2

REPORT INFORMATION
  Report Type: 
  Country: None (occurrence: None)
  Receive Date: 20110509
  Receipt Date: 20100527
  Transmission Date: 20111010
  Serious: No
  Sender: FDA-Public Use
  Company Number: US-ALEXION-A201000613

PATIENT

DRUGS (4)
  1. SOLIRIS [Suspect]
     Dosage: 900 MG, Q2W
     Route: 042
     Dates: start: 20091015
  2. CALCIUM [Concomitant]
     Dosage: UNK
     Route: 048
  3. SOLIRIS [Suspect]
     Indication: PAROXYSMAL NOCTURNAL HAEMOGLOBINURIA
     Dosage: 600 MG, QW
     Route: 042
     Dates: start: 20090917, end: 20091008
  4. SANTYL [Concomitant]
     Dosage: UNK
     Route: 061

REACTIONS (2)
  - HAEMOGLOBIN DECREASED [None]
  - BLOOD IRON INCREASED [None]
